FAERS Safety Report 18144559 (Version 2)
Quarter: 2020Q3

REPORT INFORMATION
  Report Type: Other
  Country: US (occurrence: US)
  Receive Date: 20200813
  Receipt Date: 20200907
  Transmission Date: 20201103
  Serious: Yes (Death)
  Sender: FDA-Public Use
  Company Number: US-ROCHE-2655248

PATIENT

DRUGS (1)
  1. CATHFLO ACTIVASE [Suspect]
     Active Substance: ALTEPLASE
     Indication: PRODUCT USED FOR UNKNOWN INDICATION
     Route: 065
     Dates: start: 20200723

REACTIONS (4)
  - Hepatitis alcoholic [Fatal]
  - Hepatic cirrhosis [Fatal]
  - Acute hepatic failure [Fatal]
  - Hypovolaemic shock [Fatal]
